FAERS Safety Report 9224960 (Version 2)
Quarter: 2013Q3

REPORT INFORMATION
  Report Type: Spontaneous
  Country: US (occurrence: US)
  Receive Date: 20130411
  Receipt Date: 20130711
  Transmission Date: 20140515
  Serious: No
  Sender: FDA-Public Use
  Company Number: US-BRISTOL-MYERS SQUIBB COMPANY-17339854

PATIENT
  Age: 62 Year
  Sex: Male

DRUGS (13)
  1. NULOJIX [Suspect]
     Indication: RENAL TRANSPLANT
     Route: 042
     Dates: start: 20130108
  2. ASA [Concomitant]
     Dates: start: 20130117
  3. CARVEDILOL [Concomitant]
     Dates: start: 20130121
  4. HYDROCODONE [Concomitant]
     Dosage: 1-2 TABS
     Dates: start: 20130115
  5. HUMALOG [Concomitant]
     Dosage: MIX 75/25.MIX VARIETY OF DOSES
     Dates: start: 20130115
  6. MAGIC MOUTHWASH [Concomitant]
     Dates: start: 20130121
  7. NYSTATIN [Concomitant]
     Dates: start: 20130115
  8. PANTOPRAZOLE [Concomitant]
     Dates: start: 20130115
  9. WARFARIN [Concomitant]
     Dosage: DOSE VARIES
  10. BACTRIM [Concomitant]
     Dates: start: 20130115
  11. MYFORTIC [Concomitant]
  12. PREDNISONE [Concomitant]
     Dosage: TAPER TILL 04-MAR-2013; 5MG DAILY FROM 04-MAR-2013
     Dates: start: 20130115
  13. VALCYTE [Concomitant]
     Dates: start: 20130115

REACTIONS (1)
  - Night sweats [Unknown]
